FAERS Safety Report 5921308 (Version 5)
Quarter: 2012Q4

REPORT INFORMATION
  Report Type: 
  Country: US (occurrence: US)
  Receive Date: 20051111
  Receipt Date: 20121207
  Transmission Date: 20130627
  Serious: Yes (Hospitalization)
  Sender: FDA-Public Use
  Company Number: US-JNJFOC-20051100871

PATIENT
  Age: 51 Year
  Sex: Female

DRUGS (17)
  1. MOTRIN [Suspect]
     Indication: PAIN
     Dates: start: 200509, end: 20050917
  2. FELDENE [Interacting]
     Indication: PAIN
     Dates: start: 200509, end: 20050917
  3. FMS-034 [Suspect]
     Indication: PRODUCT USED FOR UNKNOWN INDICATION
     Dates: start: 20050217, end: 20050912
  4. ALL OTHER THERAPEUTIC PRODUCTS [Suspect]
     Indication: ILL-DEFINED DISORDER
     Route: 065
     Dates: start: 20050217, end: 20050912
  5. SPIRONOLACTONE [Concomitant]
  6. PRINIVIL [Concomitant]
  7. PRILOSEC [Concomitant]
  8. SINEMET [Concomitant]
  9. ALBUTEROL [Concomitant]
  10. CLOBETASOL PROPIONATE [Concomitant]
  11. NITROGLYCERINE [Concomitant]
  12. TYLENOL [Concomitant]
  13. PREDNISONE [Concomitant]
  14. OPCON A [Concomitant]
  15. ESTRADIOL [Concomitant]
  16. PROVERA [Concomitant]
  17. LEVOTHROID [Concomitant]

REACTIONS (3)
  - Colitis ischaemic [Recovered/Resolved]
  - Drug interaction [Recovered/Resolved]
  - Lower gastrointestinal haemorrhage [Recovered/Resolved]
